FAERS Safety Report 18817511 (Version 1)
Quarter: 2021Q1

REPORT INFORMATION
  Report Type: Spontaneous
  Country: US (occurrence: US)
  Receive Date: 20210201
  Receipt Date: 20210201
  Transmission Date: 20210419
  Serious: No
  Sender: FDA-Public Use
  Company Number: US-PFIZER INC-2018516363

PATIENT
  Age: 56 Year
  Sex: Male
  Weight: 104 kg

DRUGS (2)
  1. CAVERJECT [Suspect]
     Active Substance: ALPROSTADIL
     Indication: ERECTILE DYSFUNCTION
     Dosage: UNK, AS NEEDED
     Route: 017
  2. CAVERJECT [Suspect]
     Active Substance: ALPROSTADIL
     Dosage: 20 MG, 2X/WEEK

REACTIONS (2)
  - Drug ineffective [Unknown]
  - Product prescribing error [Unknown]
